FAERS Safety Report 8083739-9 (Version None)
Quarter: 2012Q1

REPORT INFORMATION
  Report Type: 
  Country: None (occurrence: None)
  Receive Date: 20120127
  Receipt Date: 20110124
  Transmission Date: 20120608
  Serious: No
  Sender: FDA-Public Use
  Company Number: US-ABBOTT-11P-163-0700113-00

PATIENT
  Age: 66 Year
  Sex: Male

DRUGS (8)
  1. LORAZEPAM [Concomitant]
     Indication: ANXIETY
  2. HUMIRA [Suspect]
     Indication: RHEUMATOID ARTHRITIS
     Dates: start: 20100701, end: 20101223
  3. LISINOPRIL [Concomitant]
     Indication: BLOOD PRESSURE
  4. LEFLUNOMIDE [Concomitant]
     Indication: RHEUMATOID ARTHRITIS
  5. FISH OIL [Concomitant]
     Indication: SUPPLEMENTATION THERAPY
  6. D3 [Concomitant]
     Indication: VITAMIN D DECREASED
  7. DOXYCYCLINE [Concomitant]
     Indication: LYME DISEASE
  8. ASPIRIN [Concomitant]
     Indication: PROPHYLAXIS

REACTIONS (7)
  - BLISTER [None]
  - DRY SKIN [None]
  - SKIN EXFOLIATION [None]
  - CONDITION AGGRAVATED [None]
  - MENTAL STATUS CHANGES [None]
  - FATIGUE [None]
  - PAIN OF SKIN [None]
